FAERS Safety Report 7533183-5 (Version None)
Quarter: 2011Q2

REPORT INFORMATION
  Report Type: 
  Country: None (occurrence: None)
  Receive Date: 20110608
  Receipt Date: 20091120
  Transmission Date: 20111010
  Serious: Yes (Death, Other)
  Sender: FDA-Public Use
  Company Number: US-BAYER-200941018NA

PATIENT
  Age: 43 Year
  Sex: Male
  Weight: 122 kg

DRUGS (25)
  1. INSULIN [INSULIN] [Concomitant]
     Dosage: 60 UNITS AM AND 40 UNITS PM
     Route: 058
  2. LIPITOR [Concomitant]
     Dosage: 40 MG, HS
     Route: 048
  3. TOPROL-XL [Concomitant]
     Dosage: 50 MG, QD
     Route: 048
  4. TRASYLOL [Suspect]
     Dosage: 50 ML/HR, UNK
     Route: 042
     Dates: start: 20061109
  5. PREVACID [Concomitant]
     Dosage: 30 MG, UNK
     Route: 048
  6. PAPAVERINE [Concomitant]
     Dosage: 30MG IN 9ML TOTAL INFUSED, UNK
     Route: 042
     Dates: start: 20061103, end: 20061103
  7. LISINOPRIL [Concomitant]
     Dosage: 60 MG, QD
     Route: 048
  8. MAGNESIUM OXIDE [Concomitant]
     Dosage: 400 MG, UNK
     Route: 048
  9. ANCEF [Concomitant]
     Dosage: 2 GRAMS TOTAL INFUSED, UNK
     Route: 042
     Dates: start: 20061103, end: 20061103
  10. ASPIRIN [Concomitant]
     Dosage: 325 MG, QD
     Route: 048
  11. IMDUR [Concomitant]
     Dosage: 30 MG, UNK
     Route: 048
  12. HEPARIN [Concomitant]
     Dosage: 5,000 UNITS IN 500 ML TOTAL INFUSED, UNK
     Route: 042
     Dates: start: 20061103, end: 20061103
  13. TRASYLOL [Suspect]
     Indication: CORONARY ARTERY BYPASS
     Dosage: 1 ML, UNK
     Route: 042
     Dates: start: 20061109, end: 20061109
  14. TRASYLOL [Suspect]
     Dosage: 200 ML PUMP PRIME DOSE, UNK
     Route: 042
     Dates: start: 20061109, end: 20061109
  15. LORAZEPAM [Concomitant]
     Dosage: 0.5 MG, TID
     Route: 048
  16. VITAMIN B1 TAB [Concomitant]
     Dosage: 125 MG, UNK
     Route: 048
  17. THROMBIN LOCAL SOLUTION [Concomitant]
     Dosage: 10,000 UNITS TOTAL INFUSED, UNK
     Route: 042
     Dates: start: 20061103, end: 20061103
  18. KANAMYCIN [Concomitant]
     Dosage: 1 GRAM TOTAL INFUSED, UNK
     Route: 042
     Dates: start: 20061103, end: 20061103
  19. CARDIZEM [Concomitant]
     Dosage: 80 MG, QD
     Route: 048
  20. PAVULON [Concomitant]
     Dosage: 21 MG TOTAL INFUSED, UNK
     Route: 042
     Dates: start: 20061103, end: 20061103
  21. TRASYLOL [Suspect]
     Dosage: 200ML OVER 30 MINTES, UNK
     Route: 042
     Dates: start: 20061109, end: 20061109
  22. ZETIA [Concomitant]
     Dosage: 10 MG, QD
     Route: 048
  23. TRAZODONE HCL [Concomitant]
     Dosage: 50 MG, UNK
     Route: 048
  24. ZOLOFT [Concomitant]
     Dosage: 50 MG, UNK
     Route: 048
  25. VERSED [Concomitant]
     Dosage: 22 MG TOTAL INFUSED
     Route: 042
     Dates: start: 20061103, end: 20061103

REACTIONS (15)
  - DEPRESSION [None]
  - ANXIETY [None]
  - ANHEDONIA [None]
  - HAEMODIALYSIS [None]
  - BRAIN OEDEMA [None]
  - INJURY [None]
  - FEAR [None]
  - LACUNAR INFARCTION [None]
  - RENAL FAILURE [None]
  - RENAL FAILURE ACUTE [None]
  - PAIN [None]
  - PYREXIA [None]
  - DEATH [None]
  - CEREBROVASCULAR ACCIDENT [None]
  - UNEVALUABLE EVENT [None]
